FAERS Safety Report 13047538 (Version 1)
Quarter: 2016Q4

REPORT INFORMATION
  Report Type: Spontaneous
  Country: CN (occurrence: CN)
  Receive Date: 20161220
  Receipt Date: 20161220
  Transmission Date: 20170207
  Serious: Yes (Hospitalization, Other)
  Sender: FDA-Public Use
  Company Number: CN-ELI_LILLY_AND_COMPANY-CN201612005207

PATIENT
  Age: 47 Year
  Sex: Female
  Weight: 55 kg

DRUGS (2)
  1. GEMZAR [Suspect]
     Active Substance: GEMCITABINE HYDROCHLORIDE
     Indication: PRODUCT USED FOR UNKNOWN INDICATION
     Dosage: 1.4 G, CYCLICAL
     Route: 042
     Dates: start: 20160913, end: 20160915
  2. NUO XIN [Suspect]
     Active Substance: CISPLATIN
     Indication: PRODUCT USED FOR UNKNOWN INDICATION
     Dosage: 40 MG, QD
     Route: 042
     Dates: start: 20160913, end: 20160915

REACTIONS (4)
  - Dysuria [None]
  - Lung neoplasm malignant [Unknown]
  - Haemoptysis [None]
  - Renal injury [Recovering/Resolving]

NARRATIVE: CASE EVENT DATE: 20160915
